FAERS Safety Report 22061165 (Version 1)
Quarter: 2023Q1

REPORT INFORMATION
  Report Type: Spontaneous
  Country: AU (occurrence: AU)
  Receive Date: 20230303
  Receipt Date: 20230303
  Transmission Date: 20230418
  Serious: Yes (Other)
  Sender: FDA-Public Use
  Company Number: AU-BoehringerIngelheim-2023-BI-222756

PATIENT
  Age: 17 Year
  Sex: Male

DRUGS (4)
  1. CLONIDINE [Suspect]
     Active Substance: CLONIDINE
     Indication: Autism spectrum disorder
  2. FLUOXETINE HYDROCHLORIDE [Suspect]
     Active Substance: FLUOXETINE HYDROCHLORIDE
     Indication: Autism spectrum disorder
  3. LORATADINE [Suspect]
     Active Substance: LORATADINE
     Indication: Autism spectrum disorder
  4. RISPERIDONE [Suspect]
     Active Substance: RISPERIDONE
     Indication: Autism spectrum disorder

REACTIONS (4)
  - Anxiety [Unknown]
  - Behaviour disorder [Unknown]
  - Drug interaction [Unknown]
  - Therapeutic product effect incomplete [Unknown]
